FAERS Safety Report 8087161-0 (Version None)
Quarter: 2012Q1

REPORT INFORMATION
  Report Type: 
  Country: None (occurrence: None)
  Receive Date: 20120128
  Receipt Date: 20110404
  Transmission Date: 20120608
  Serious: No
  Sender: FDA-Public Use
  Company Number: US-ABBOTT-11P-163-0716997-00

PATIENT
  Sex: Male
  Weight: 104.42 kg

DRUGS (9)
  1. ALLOPURINOL [Concomitant]
     Indication: GOUT
  2. METOPROLOL TARTRATE [Concomitant]
     Indication: HYPERTENSION
     Route: 048
  3. MORPHINE [Concomitant]
     Indication: BACK PAIN
  4. HUMIRA [Suspect]
     Indication: RHEUMATOID ARTHRITIS
     Route: 058
     Dates: start: 20110401
  5. HUMIRA [Suspect]
     Route: 058
     Dates: end: 20101201
  6. JALYN [Concomitant]
     Indication: PROSTATIC DISORDER
  7. TOPAMAX [Suspect]
     Indication: HEADACHE
  8. PREDNISONE TAB [Concomitant]
     Indication: PRODUCT USED FOR UNKNOWN INDICATION
     Route: 048
  9. TESTOSTERONE SHOTS [Concomitant]
     Indication: BLOOD TESTOSTERONE
     Route: 050

REACTIONS (2)
  - WEIGHT INCREASED [None]
  - HEADACHE [None]
